FAERS Safety Report 17250551 (Version 1)
Quarter: 2020Q1

REPORT INFORMATION
  Report Type: Spontaneous
  Country: GB (occurrence: GB)
  Receive Date: 20200109
  Receipt Date: 20200109
  Transmission Date: 20200409
  Serious: Yes (Life-Threatening, Hospitalization, Other)
  Sender: FDA-Public Use
  Company Number: GB-009507513-2001GBR001170

PATIENT
  Age: 81 Year
  Sex: Female

DRUGS (2)
  1. PEMBROLIZUMAB. [Suspect]
     Active Substance: PEMBROLIZUMAB
     Dosage: 150 MILLIGRAM, EVERY THREE WEEKS
     Dates: start: 201805, end: 201808
  2. PEMBROLIZUMAB. [Suspect]
     Active Substance: PEMBROLIZUMAB
     Indication: METASTATIC MALIGNANT MELANOMA
     Dosage: 140 MILLIGRAM, EVERY THREE WEEKS
     Dates: start: 201608, end: 201805

REACTIONS (3)
  - Autoimmune haemolytic anaemia [Recovered/Resolved]
  - Cholangitis [Recovered/Resolved]
  - Cholecystitis [Recovered/Resolved]

NARRATIVE: CASE EVENT DATE: 2018
